FAERS Safety Report 6866150-5 (Version None)
Quarter: 2010Q3

REPORT INFORMATION
  Report Type: 
  Country: None (occurrence: None)
  Receive Date: 20100722
  Receipt Date: 20100709
  Transmission Date: 20110219
  Serious: Yes (Hospitalization)
  Sender: FDA-Public Use
  Company Number: US-ELI_LILLY_AND_COMPANY-US201007003555

PATIENT
  Sex: Female

DRUGS (14)
  1. FORTEO [Suspect]
     Indication: OSTEOPOROSIS
     Dosage: 20 UG, DAILY (1/D)
     Route: 065
     Dates: start: 20100514
  2. HYZAAR [Concomitant]
     Dosage: UNK, UNKNOWN
     Route: 065
  3. LABETALOL HCL [Concomitant]
     Dosage: UNK, UNKNOWN
     Route: 065
  4. PLAQUENIL [Concomitant]
     Dosage: UNK, UNKNOWN
     Route: 065
  5. PREDNISONE [Concomitant]
     Dosage: UNK, UNKNOWN
     Route: 065
  6. GABAPENTINE [Concomitant]
     Dosage: UNK, UNKNOWN
     Route: 065
  7. CALCIUM [Concomitant]
     Dosage: UNK, UNKNOWN
     Route: 065
  8. VITAMINS [Concomitant]
     Dosage: UNK, UNKNOWN
     Route: 065
  9. ZANTAC [Concomitant]
     Dosage: UNK, UNKNOWN
     Route: 065
  10. BILBERRY [Concomitant]
     Dosage: UNK, UNKNOWN
     Route: 065
  11. AMLODIPINE [Concomitant]
     Dosage: UNK, UNKNOWN
     Route: 065
  12. LUMIGAN [Concomitant]
     Dosage: UNK, UNKNOWN
     Route: 065
  13. TIMOLOL MALEATE [Concomitant]
     Dosage: UNK, UNKNOWN
     Route: 065
  14. ALPHAGAN [Concomitant]

REACTIONS (3)
  - COUGH [None]
  - LUNG INFECTION [None]
  - RIB FRACTURE [None]
